FAERS Safety Report 16643691 (Version 1)
Quarter: 2019Q3

REPORT INFORMATION
  Report Type: Spontaneous
  Country: US (occurrence: US)
  Receive Date: 20190729
  Receipt Date: 20190729
  Transmission Date: 20191004
  Serious: No
  Sender: FDA-Public Use
  Company Number: US-PRINSTON PHARMACEUTICAL INC.-2019PRN00054

PATIENT
  Sex: Female

DRUGS (2)
  1. LOSARTAN POTASSIUM. [Suspect]
     Active Substance: LOSARTAN POTASSIUM
     Dosage: 50 MG
     Dates: start: 20190104, end: 201901
  2. LOSARTAN POTASSIUM (LUPIN) [Suspect]
     Active Substance: LOSARTAN POTASSIUM
     Dosage: UNK
     Dates: start: 201901

REACTIONS (2)
  - Gingival discomfort [Not Recovered/Not Resolved]
  - Gingival pain [Not Recovered/Not Resolved]
